FAERS Safety Report 6107942-X (Version None)
Quarter: 2009Q1

REPORT INFORMATION
  Report Type: 
  Country: None (occurrence: None)
  Receive Date: 20090309
  Receipt Date: 20090206
  Transmission Date: 20090719
  Serious: No
  Sender: FDA-Public Use
  Company Number: US-BAYER-200812889BCC

PATIENT
  Age: 57 Year
  Sex: Female
  Weight: 113 kg

DRUGS (6)
  1. ALEVE [Suspect]
     Indication: ARTHRALGIA
     Dosage: TOTAL DAILY DOSE: 440 MG  UNIT DOSE: 220 MG
     Route: 048
     Dates: start: 20080620
  2. ALEVE [Suspect]
     Dosage: TOTAL DAILY DOSE: 440 MG  UNIT DOSE: 220 MG
     Route: 048
     Dates: start: 20080621, end: 20080625
  3. METFORMIN [Concomitant]
  4. INSULIN [Concomitant]
  5. ASPIRIN [Concomitant]
     Route: 048
  6. SYNTHROID [Concomitant]

REACTIONS (1)
  - FLUID RETENTION [None]
